FAERS Safety Report 23281837 (Version 6)
Quarter: 2024Q1

REPORT INFORMATION
  Report Type: Spontaneous
  Country: NL (occurrence: NL)
  Receive Date: 20231211
  Receipt Date: 20240111
  Transmission Date: 20240409
  Serious: Yes (Disabling)
  Sender: FDA-Public Use
  Company Number: None

PATIENT
  Age: 56 Year
  Sex: Female
  Weight: 70 kg

DRUGS (4)
  1. GILENYA [Suspect]
     Active Substance: FINGOLIMOD HYDROCHLORIDE
     Indication: Multiple sclerosis
     Dosage: 0.25 MG, QD (MEDICINE PRESCRIBED BY DOCTOR: YES)
     Route: 048
     Dates: start: 20210616
  2. TAMOXIFEN [Suspect]
     Active Substance: TAMOXIFEN
     Indication: Invasive lobular breast carcinoma
     Dosage: 1 DOSAGE FORM, QD (1X1))
     Route: 048
     Dates: start: 20200701
  3. LEUPROLIDE ACETATE [Suspect]
     Active Substance: LEUPROLIDE ACETATE
     Indication: Prophylaxis
     Dosage: UNK, (EVERY 3 MONTHS, MEDICINE PRESCRIBED BY DOCTOR: YES)
     Route: 065
     Dates: start: 20210116
  4. POLYETHYLENE GLYCOLS [Concomitant]
     Active Substance: POLYETHYLENE GLYCOLS
     Indication: Product used for unknown indication
     Dosage: UNK
     Route: 065

REACTIONS (5)
  - Small fibre neuropathy [Recovering/Resolving]
  - COVID-19 [Recovering/Resolving]
  - Rash erythematous [Recovering/Resolving]
  - Hair disorder [Recovering/Resolving]
  - Paraesthesia [Recovering/Resolving]
